FAERS Safety Report 25172366 (Version 1)
Quarter: 2025Q2

REPORT INFORMATION
  Report Type: Spontaneous
  Country: US (occurrence: US)
  Receive Date: 20250408
  Receipt Date: 20250408
  Transmission Date: 20250717
  Serious: Yes (Hospitalization)
  Sender: MYLAN
  Company Number: US-MYLANLABS-2025M1029488

PATIENT
  Age: 29 Year
  Sex: Female

DRUGS (2)
  1. APIXABAN [Suspect]
     Active Substance: APIXABAN
     Indication: Cerebrovascular accident
  2. APIXABAN [Suspect]
     Active Substance: APIXABAN
     Indication: Prophylaxis

REACTIONS (1)
  - Drug ineffective [Unknown]
